FAERS Safety Report 11878433 (Version 1)
Quarter: 2015Q4

REPORT INFORMATION
  Report Type: Spontaneous
  Country: US (occurrence: None)
  Receive Date: 20151229
  Receipt Date: 20151229
  Transmission Date: 20160305
  Serious: No
  Sender: FDA-Public Use
  Company Number: None

PATIENT
  Age: 5 Month
  Sex: Male
  Weight: 9.07 kg

DRUGS (1)
  1. BABY TEETHING [Suspect]
     Active Substance: ATROPA BELLADONNA\CALCIUM PHOSPHATE\CHAMOMILE\COFFEA ARABICA FRUIT
     Route: 060
     Dates: start: 20151202, end: 20151228

REACTIONS (2)
  - Hypersomnia [None]
  - Constipation [None]

NARRATIVE: CASE EVENT DATE: 20151228
